FAERS Safety Report 23752095 (Version 2)
Quarter: 2024Q2

REPORT INFORMATION
  Report Type: Spontaneous
  Country: US (occurrence: US)
  Receive Date: 20240417
  Receipt Date: 20240429
  Transmission Date: 20240716
  Serious: No
  Sender: FDA-Public Use
  Company Number: US-SA-SAC20240413000252

PATIENT
  Age: 46 Year
  Sex: Female
  Weight: 77.1 kg

DRUGS (6)
  1. DUPIXENT [Suspect]
     Active Substance: DUPILUMAB
     Indication: Eosinophilic oesophagitis
     Dosage: 300 MG, QW
     Route: 058
  2. AMBIEN [Concomitant]
     Active Substance: ZOLPIDEM TARTRATE
     Dosage: UNK
  3. DEXAMETHASONE [Concomitant]
     Active Substance: DEXAMETHASONE
  4. VITAMINS NOS [Concomitant]
     Active Substance: VITAMINS
  5. PANTOPRAZOLE [Concomitant]
     Active Substance: PANTOPRAZOLE
  6. LO LOESTRIN FE [Concomitant]
     Active Substance: ETHINYL ESTRADIOL\NORETHINDRONE ACETATE

REACTIONS (11)
  - Injection site irritation [Unknown]
  - Injection site erythema [Unknown]
  - Visual impairment [Unknown]
  - Oropharyngeal pain [Unknown]
  - Photophobia [Unknown]
  - Vision blurred [Unknown]
  - Dry eye [Recovering/Resolving]
  - Eye pruritus [Unknown]
  - Eye pain [Unknown]
  - Eye irritation [Unknown]
  - Ocular hyperaemia [Not Recovered/Not Resolved]

NARRATIVE: CASE EVENT DATE: 20240401
